FAERS Safety Report 4892184-6 (Version None)
Quarter: 2006Q1

REPORT INFORMATION
  Report Type: 
  Country: None (occurrence: None)
  Receive Date: 20060123
  Receipt Date: 20060112
  Transmission Date: 20060701
  Serious: Yes (Other)
  Sender: FDA-Public Use
  Company Number: 2006-01-0871

PATIENT
  Age: 52 Year
  Sex: Female

DRUGS (2)
  1. INTERFERON INJECTABLE [Suspect]
     Indication: HEPATITIS C
  2. RIBAVIRIN [Suspect]
     Indication: HEPATITIS C

REACTIONS (7)
  - ALOPECIA [None]
  - ANGIOGRAM ABNORMAL [None]
  - DEAFNESS [None]
  - OCULAR HYPERAEMIA [None]
  - RETINAL DETACHMENT [None]
  - VISUAL ACUITY REDUCED [None]
  - VOGT-KOYANAGI-HARADA SYNDROME [None]
